FAERS Safety Report 9773497 (Version 1)
Quarter: 2013Q4

REPORT INFORMATION
  Report Type: Spontaneous
  Country: US (occurrence: US)
  Receive Date: 20131219
  Receipt Date: 20131219
  Transmission Date: 20140711
  Serious: Yes (Other)
  Sender: FDA-Public Use
  Company Number: GXBR2013US002149

PATIENT
  Sex: Female

DRUGS (1)
  1. ATENOLOL TABLETS USP [Suspect]
     Dosage: 25 MG, QD
     Route: 048
     Dates: start: 2009, end: 201311

REACTIONS (2)
  - Convulsion [Recovered/Resolved]
  - Cardiac arrest [Recovered/Resolved]
